FAERS Safety Report 5068980-1 (Version None)
Quarter: 2006Q3

REPORT INFORMATION
  Report Type: 
  Country: None (occurrence: None)
  Receive Date: 20060801
  Receipt Date: 20060801
  Transmission Date: 20061208
  Serious: Yes (Life-Threatening, Hospitalization, Disabling, Congenital Anomaly, Other)
  Sender: FDA-Public Use
  Company Number: None

PATIENT
  Sex: Male
  Weight: 8 kg

DRUGS (2)
  1. PAXIL [Suspect]
     Indication: ANXIETY
     Dosage: 25 MG DAILY PO
     Route: 048
     Dates: start: 19990301, end: 20060731
  2. PAXIL [Suspect]
     Indication: DEPRESSION
     Dosage: 25 MG DAILY PO
     Route: 048
     Dates: start: 19990301, end: 20060731

REACTIONS (22)
  - APGAR SCORE LOW [None]
  - APRAXIA [None]
  - BRAIN STEM SYNDROME [None]
  - CEREBRAL PALSY [None]
  - CONVULSION NEONATAL [None]
  - DEAFNESS [None]
  - DEVELOPMENTAL DELAY [None]
  - DRUG EXPOSURE DURING PREGNANCY [None]
  - DRUG EXPOSURE VIA BREAST MILK [None]
  - DYSKINESIA [None]
  - DYSKINESIA NEONATAL [None]
  - FEEDING DISORDER NEONATAL [None]
  - HEMIPARESIS [None]
  - HYPOTONIA [None]
  - INFANTILE APNOEIC ATTACK [None]
  - JAUNDICE NEONATAL [None]
  - LETHARGY [None]
  - LOSS OF CONSCIOUSNESS [None]
  - NEONATAL DISORDER [None]
  - SENSORY INTEGRATIVE DYSFUNCTION [None]
  - VOMITING NEONATAL [None]
  - WEIGHT DECREASE NEONATAL [None]
